FAERS Safety Report 14970750 (Version 1)
Quarter: 2018Q2

REPORT INFORMATION
  Report Type: Spontaneous
  Country: ES (occurrence: ES)
  Receive Date: 20180604
  Receipt Date: 20180604
  Transmission Date: 20180711
  Serious: Yes (Other)
  Sender: FDA-Public Use
  Company Number: ES-BAYER-2018-103149

PATIENT
  Sex: Male

DRUGS (1)
  1. NEXAVAR [Suspect]
     Active Substance: SORAFENIB
     Indication: HEPATOCELLULAR CARCINOMA
     Dosage: 800 MG, QD
     Dates: start: 2016, end: 20180305

REACTIONS (11)
  - Hypoalbuminaemia [Recovered/Resolved]
  - Hepatic cancer [Unknown]
  - Peritonitis [Recovered/Resolved]
  - Hepatic function abnormal [Recovered/Resolved]
  - Hepatic cancer [Recovered/Resolved]
  - Ascites [Unknown]
  - Hepatic cancer [Not Recovered/Not Resolved]
  - Intra-abdominal fluid collection [Recovered/Resolved]
  - Encephalopathy [Recovered/Resolved]
  - Renal failure [Recovered/Resolved]
  - Hepatic rupture [Recovered/Resolved]

NARRATIVE: CASE EVENT DATE: 2018
